FAERS Safety Report 10308714 (Version 1)
Quarter: 2014Q3

REPORT INFORMATION
  Report Type: Spontaneous
  Country: US (occurrence: US)
  Receive Date: 20140716
  Receipt Date: 20140716
  Transmission Date: 20150326
  Serious: Yes (Other)
  Sender: FDA-Public Use
  Company Number: US-TEVA-493692USA

PATIENT
  Sex: Female

DRUGS (1)
  1. QUARTETTE [Suspect]
     Active Substance: ETHINYL ESTRADIOL\LEVONORGESTREL
     Dates: start: 201401, end: 20140417

REACTIONS (5)
  - Peripheral swelling [Recovering/Resolving]
  - Hypertension [Not Recovered/Not Resolved]
  - Hepatic enzyme increased [Unknown]
  - Abasia [Unknown]
  - Contusion [Unknown]

NARRATIVE: CASE EVENT DATE: 2014
